FAERS Safety Report 20884073 (Version 1)
Quarter: 2022Q2

REPORT INFORMATION
  Report Type: Spontaneous
  Country: US (occurrence: US)
  Receive Date: 20220527
  Receipt Date: 20220527
  Transmission Date: 20220721
  Serious: No
  Sender: FDA-Public Use
  Company Number: US-TAKEDA-2022TUS034109

PATIENT

DRUGS (1)
  1. MOTEGRITY [Suspect]
     Active Substance: PRUCALOPRIDE SUCCINATE
     Indication: Product used for unknown indication
     Route: 065

REACTIONS (6)
  - Swelling [Unknown]
  - Pain [Unknown]
  - Constipation [Unknown]
  - Illness [Unknown]
  - Insomnia [Unknown]
  - Inability to afford medication [Unknown]
